FAERS Safety Report 6276424-7 (Version None)
Quarter: 2009Q3

REPORT INFORMATION
  Report Type: 
  Country: None (occurrence: None)
  Receive Date: 20090720
  Receipt Date: 20090713
  Transmission Date: 20100115
  Serious: Yes (Other)
  Sender: FDA-Public Use
  Company Number: CAP09000169

PATIENT
  Age: 67 Year
  Sex: Female

DRUGS (2)
  1. ACTONEL [Suspect]
     Indication: OSTEOPOROSIS
     Dosage: 35 MG ONCE WEEKLY, ORAL; 35 MG ONCE WEEKLY, ORAL
     Route: 048
     Dates: start: 20010101, end: 20090301
  2. ACTONEL [Suspect]
     Indication: OSTEOPOROSIS
     Dosage: 35 MG ONCE WEEKLY, ORAL; 35 MG ONCE WEEKLY, ORAL
     Route: 048
     Dates: start: 20090701

REACTIONS (5)
  - BONE MARROW DISORDER [None]
  - NEOPLASM MALIGNANT [None]
  - PAIN [None]
  - RASH [None]
  - THYROID DISORDER [None]
